FAERS Safety Report 6401156-1 (Version None)
Quarter: 2009Q4

REPORT INFORMATION
  Report Type: 
  Country: None (occurrence: None)
  Receive Date: 20091015
  Receipt Date: 20070913
  Transmission Date: 20100525
  Serious: Yes (Disabling)
  Sender: FDA-Public Use
  Company Number: US-ASTRAZENECA-2006UW08413

PATIENT
  Sex: Female
  Weight: 86.2 kg

DRUGS (5)
  1. SEROQUEL [Suspect]
     Dosage: 25 MG - 900 MG
     Route: 048
     Dates: start: 20011128
  2. NEURONTIN [Concomitant]
     Dosage: 100 MG - 300 MG
     Dates: start: 20011105
  3. NEURONTIN [Concomitant]
     Dates: start: 20050927
  4. ZOLOFT [Concomitant]
     Dosage: 100 MG - 200 MG
     Route: 048
     Dates: start: 20011128
  5. WELLBUTRIN [Concomitant]
     Dosage: 100 MG - 300 MG
     Dates: start: 20030515

REACTIONS (1)
  - ILL-DEFINED DISORDER [None]
